FAERS Safety Report 4576373-6 (Version None)
Quarter: 2005Q1

REPORT INFORMATION
  Report Type: 
  Country: None (occurrence: None)
  Receive Date: 20050207
  Receipt Date: 20050125
  Transmission Date: 20050727
  Serious: Yes (Hospitalization)
  Sender: FDA-Public Use
  Company Number: 2005018414

PATIENT
  Age: 53 Year
  Sex: Female
  Weight: 130 kg

DRUGS (5)
  1. CELEBREX [Suspect]
     Indication: OSTEOARTHRITIS
     Dosage: 200 MG (200 MG, DAILY), ORAL
     Route: 048
     Dates: start: 20030904
  2. VENLAFAXINE HCL [Concomitant]
  3. ATENOLOL [Concomitant]
  4. CHLORTALIDONE (CHLORTALDINE) [Concomitant]
  5. ACETAMINOPHEN [Concomitant]

REACTIONS (8)
  - ABDOMINAL PAIN UPPER [None]
  - CHEST PAIN [None]
  - DYSPNOEA [None]
  - FEELING ABNORMAL [None]
  - HYPERHIDROSIS [None]
  - PARAESTHESIA [None]
  - PARESIS [None]
  - TREMOR [None]
